FAERS Safety Report 7384732-1 (Version None)
Quarter: 2011Q1

REPORT INFORMATION
  Report Type: 
  Country: None (occurrence: None)
  Receive Date: 20110330
  Receipt Date: 20110316
  Transmission Date: 20110831
  Serious: Yes (Hospitalization, Other)
  Sender: FDA-Public Use
  Company Number: PHHY2011US22442

PATIENT
  Sex: Male

DRUGS (24)
  1. EXJADE [Suspect]
     Indication: IRON OVERLOAD
     Dosage: 500 MG, TID
     Dates: start: 20090227
  2. CIPRO [Concomitant]
  3. LASIX [Concomitant]
  4. KYTRIL [Concomitant]
  5. NORVASC [Concomitant]
  6. NITROGLYCERIN [Concomitant]
  7. IMODIUM [Concomitant]
  8. FAMOTIDINE [Concomitant]
  9. PROCRIT [Concomitant]
  10. METFORMIN [Concomitant]
  11. HYDROCHLOROTHIAZDE TAB [Concomitant]
  12. CLONAZEPAM [Concomitant]
  13. LORTAB [Concomitant]
  14. DECITABINE [Concomitant]
     Dosage: 15 MG, UNK
     Route: 042
     Dates: start: 20090706
  15. EXJADE [Suspect]
     Dosage: 500 MG, QID
     Dates: start: 20091015
  16. METHADONE [Concomitant]
  17. ACETAMINOPHEN [Concomitant]
  18. PLAVIX [Concomitant]
  19. PRILOSEC [Concomitant]
  20. METOPROLOL [Concomitant]
  21. COZAAR [Concomitant]
  22. DECITABINE [Concomitant]
     Dosage: 40 MG, UNK
     Route: 042
     Dates: start: 20090323
  23. LIDOCAINE [Concomitant]
  24. ATIVAN [Concomitant]

REACTIONS (63)
  - RALES [None]
  - SPUTUM ABNORMAL [None]
  - CHEST PAIN [None]
  - HAEMOPTYSIS [None]
  - HYPERBILIRUBINAEMIA [None]
  - BREATH SOUNDS ABNORMAL [None]
  - INFLUENZA [None]
  - DYSPNOEA PAROXYSMAL NOCTURNAL [None]
  - BONE MARROW FAILURE [None]
  - BLOOD PRESSURE DECREASED [None]
  - ABDOMINAL DISCOMFORT [None]
  - DYSPNOEA [None]
  - NIGHT SWEATS [None]
  - NOCTURIA [None]
  - WEIGHT INCREASED [None]
  - NASOPHARYNGITIS [None]
  - TENDERNESS [None]
  - BLOOD GLUCOSE INCREASED [None]
  - PYREXIA [None]
  - HAEMATOMA [None]
  - VISUAL IMPAIRMENT [None]
  - ABDOMINAL PAIN [None]
  - CONSTIPATION [None]
  - UPPER RESPIRATORY TRACT INFECTION [None]
  - DISCOMFORT [None]
  - SKIN DISCOLOURATION [None]
  - NEUTROPENIA [None]
  - CHEST DISCOMFORT [None]
  - BLOOD ALKALINE PHOSPHATASE INCREASED [None]
  - NASAL DRYNESS [None]
  - FATIGUE [None]
  - MUSCULAR WEAKNESS [None]
  - DISTURBANCE IN ATTENTION [None]
  - EYE OEDEMA [None]
  - LUNG INFILTRATION [None]
  - ANGINA PECTORIS [None]
  - NECROTISING COLITIS [None]
  - NAUSEA [None]
  - DYSPHAGIA [None]
  - COGNITIVE DISORDER [None]
  - PNEUMONIA [None]
  - PANCYTOPENIA [None]
  - CROHN'S DISEASE [None]
  - AGITATION [None]
  - CHOLELITHIASIS [None]
  - EAR DISORDER [None]
  - PAIN [None]
  - DIARRHOEA [None]
  - ECCHYMOSIS [None]
  - COUGH [None]
  - DEPRESSION [None]
  - ANXIETY [None]
  - OEDEMA PERIPHERAL [None]
  - CONFUSIONAL STATE [None]
  - ARTHRITIS [None]
  - BACK PAIN [None]
  - THROMBOCYTOPENIA [None]
  - SPLENOMEGALY [None]
  - LOSS OF CONSCIOUSNESS [None]
  - EPISTAXIS [None]
  - ARTHRALGIA [None]
  - VISION BLURRED [None]
  - EMOTIONAL DISTRESS [None]
